FAERS Safety Report 10718515 (Version 1)
Quarter: 2015Q1

REPORT INFORMATION
  Report Type: Spontaneous
  Country: FR (occurrence: FR)
  Receive Date: 20150119
  Receipt Date: 20150119
  Transmission Date: 20150721
  Serious: Yes (Hospitalization)
  Sender: FDA-Public Use
  Company Number: FR-009507513-1501FRA005424

PATIENT
  Age: 57 Year
  Sex: Male

DRUGS (4)
  1. TEGRETOL [Suspect]
     Active Substance: CARBAMAZEPINE
     Indication: EPILEPSY
     Dosage: 400 MG MORNING AND 600 MG EVENING
     Route: 048
     Dates: start: 2005
  2. URBANYL [Suspect]
     Active Substance: CLOBAZAM
     Indication: EPILEPSY
     Dosage: 5 MG MORNING AND 10 MG EVENING
     Route: 048
     Dates: start: 2005
  3. CLARITYNE [Suspect]
     Active Substance: LORATADINE
     Dosage: 1 DF, QD
     Route: 048
     Dates: start: 20091214
  4. VIMPAT [Suspect]
     Active Substance: LACOSAMIDE
     Indication: EPILEPSY
     Dosage: 150 MG MORNING, 100 MG MIDDAY AND 200 MG AT BEDTIME
     Route: 048
     Dates: start: 20110322

REACTIONS (1)
  - Peripheral sensorimotor neuropathy [Not Recovered/Not Resolved]

NARRATIVE: CASE EVENT DATE: 20130530
